FAERS Safety Report 7375891-5 (Version None)
Quarter: 2011Q1

REPORT INFORMATION
  Report Type: 
  Country: None (occurrence: None)
  Receive Date: 20110325
  Receipt Date: 20110321
  Transmission Date: 20110831
  Serious: Yes (Hospitalization)
  Sender: FDA-Public Use
  Company Number: B0695581A

PATIENT
  Sex: Female

DRUGS (6)
  1. TAHOR [Concomitant]
  2. CARDENSIEL [Concomitant]
  3. KARDEGIC [Concomitant]
  4. FIXICAL [Concomitant]
  5. AMLODIPINE BESYLATE [Concomitant]
  6. PAZOPANIB [Suspect]
     Indication: NON-SMALL CELL LUNG CANCER STAGE I
     Dosage: 400MG TWICE PER DAY
     Route: 048
     Dates: start: 20110104, end: 20110113

REACTIONS (8)
  - CELL DEATH [None]
  - HYPERTHERMIA [None]
  - ABDOMINAL PAIN [None]
  - VOMITING [None]
  - HEPATOCELLULAR INJURY [None]
  - NAUSEA [None]
  - CHOLESTASIS [None]
  - HEPATITIS [None]
